FAERS Safety Report 5597548-3 (Version None)
Quarter: 2008Q1

REPORT INFORMATION
  Report Type: 
  Country: None (occurrence: None)
  Receive Date: 20080121
  Receipt Date: 20080109
  Transmission Date: 20080703
  Serious: Yes (Hospitalization)
  Sender: FDA-Public Use
  Company Number: MX-ROCHE-541084

PATIENT
  Age: 22 Year
  Sex: Male
  Weight: 68 kg

DRUGS (4)
  1. INVIRASE [Suspect]
     Route: 048
     Dates: start: 20070508
  2. RITONAVIR [Concomitant]
     Route: 048
     Dates: start: 20070508
  3. LAMIVUDINE [Concomitant]
     Route: 048
     Dates: start: 20070508
  4. ZIDOVUDINE [Concomitant]
     Route: 048
     Dates: start: 20070508

REACTIONS (1)
  - BENIGN NEOPLASM [None]
